FAERS Safety Report 11599741 (Version 1)
Quarter: 2015Q4

REPORT INFORMATION
  Report Type: Spontaneous
  Country: US (occurrence: US)
  Receive Date: 20151006
  Receipt Date: 20151006
  Transmission Date: 20160304
  Serious: Yes (Other)
  Sender: FDA-Public Use
  Company Number: US-ABBVIE-15P-163-1473903-00

PATIENT
  Sex: Male

DRUGS (1)
  1. ANDROGEL [Suspect]
     Active Substance: TESTOSTERONE
     Indication: ANDROGEN REPLACEMENT THERAPY
     Route: 061
     Dates: start: 20111024, end: 20131101

REACTIONS (4)
  - Surgery [Unknown]
  - Arterial thrombosis [Unknown]
  - Peripheral arterial occlusive disease [Unknown]
  - Vein disorder [Unknown]

NARRATIVE: CASE EVENT DATE: 20131203
